FAERS Safety Report 15694065 (Version 1)
Quarter: 2018Q4

REPORT INFORMATION
  Report Type: Spontaneous
  Country: US (occurrence: US)
  Receive Date: 20181206
  Receipt Date: 20181206
  Transmission Date: 20190205
  Serious: No
  Sender: FDA-Public Use
  Company Number: US-BAUSCH-BL-2018-008719

PATIENT
  Age: 72 Year
  Sex: Female
  Weight: 58.57 kg

DRUGS (5)
  1. PEPCID [Suspect]
     Active Substance: FAMOTIDINE
     Indication: DYSPEPSIA
     Route: 065
     Dates: start: 201803
  2. TIMOPTIC [Suspect]
     Active Substance: TIMOLOL MALEATE
     Indication: GLAUCOMA
     Route: 047
     Dates: start: 20180319, end: 20180321
  3. PEPCID [Suspect]
     Active Substance: FAMOTIDINE
     Indication: HYPERCHLORHYDRIA
  4. TYLENOL [Concomitant]
     Active Substance: ACETAMINOPHEN
     Indication: BACK PAIN
     Dosage: OCCASIONALLY
  5. LORAZEPAM. [Concomitant]
     Active Substance: LORAZEPAM
     Indication: POOR QUALITY SLEEP
     Dosage: AT NIGHT

REACTIONS (10)
  - Decreased appetite [Recovered/Resolved]
  - Paranasal sinus hypersecretion [Recovered/Resolved]
  - Dry eye [Recovered/Resolved]
  - Rhinorrhoea [Recovered/Resolved]
  - Vision blurred [Recovered/Resolved]
  - Dyspepsia [Recovering/Resolving]
  - Gastrointestinal pain [Recovered/Resolved]
  - Drug effect incomplete [Unknown]
  - Superficial injury of eye [Recovered/Resolved]
  - Hyperchlorhydria [Recovering/Resolving]

NARRATIVE: CASE EVENT DATE: 201803
